FAERS Safety Report 7309388-5 (Version None)
Quarter: 2011Q1

REPORT INFORMATION
  Report Type: 
  Country: None (occurrence: None)
  Receive Date: 20110223
  Receipt Date: 20110208
  Transmission Date: 20110831
  Serious: Yes (Death)
  Sender: FDA-Public Use
  Company Number: US-CELGENEUS-163-21880-11021364

PATIENT
  Age: 62 Year
  Sex: Male

DRUGS (9)
  1. HYDROCHLOROTHIAZIDE [Concomitant]
     Route: 065
  2. DURAGESIC-50 [Concomitant]
     Route: 065
  3. CYTOXAN [Concomitant]
     Route: 065
  4. ARIMIDEX [Concomitant]
     Route: 065
  5. DILAUDID [Concomitant]
     Route: 065
  6. DECADRON [Concomitant]
     Route: 065
  7. CLARITHROMYCIN [Concomitant]
     Route: 065
  8. LISINOPRIL [Concomitant]
     Route: 065
  9. REVLIMID [Suspect]
     Indication: MULTIPLE MYELOMA
     Route: 048
     Dates: start: 20090301, end: 20100801

REACTIONS (3)
  - MULTIPLE MYELOMA [None]
  - DISEASE PROGRESSION [None]
  - DEATH [None]
